FAERS Safety Report 4987745-X (Version None)
Quarter: 2006Q2

REPORT INFORMATION
  Report Type: 
  Country: None (occurrence: None)
  Receive Date: 20060428
  Receipt Date: 20060428
  Transmission Date: 20061013
  Serious: Yes (Life-Threatening, Hospitalization)
  Sender: FDA-Public Use
  Company Number: None

PATIENT
  Age: 21 Year
  Sex: Female
  Weight: 35 kg

DRUGS (2)
  1. METOPROLOL TARTRATE [Suspect]
     Indication: HEART RATE INCREASED
     Dosage: 5 MG NOW IV
     Route: 042
     Dates: start: 20060330, end: 20060330
  2. DIGOXIN [Suspect]
     Indication: HEART RATE INCREASED
     Dosage: 0.25 MG ONE IV
     Route: 042
     Dates: start: 20060330, end: 20060330

REACTIONS (2)
  - BLOOD PRESSURE IMMEASURABLE [None]
  - HEART RATE INCREASED [None]
